FAERS Safety Report 5235399-X (Version None)
Quarter: 2007Q1

REPORT INFORMATION
  Report Type: 
  Country: None (occurrence: None)
  Receive Date: 20070212
  Receipt Date: 20070201
  Transmission Date: 20070707
  Serious: Yes (Hospitalization, Other)
  Sender: FDA-Public Use
  Company Number: 2007PK00202

PATIENT
  Age: 18820 Day
  Sex: Female

DRUGS (2)
  1. NOLVADEX [Suspect]
     Indication: BREAST CANCER
     Route: 048
     Dates: start: 20050427
  2. ZOLADEX [Concomitant]
     Indication: BREAST CANCER
     Route: 058
     Dates: start: 20050427

REACTIONS (1)
  - CERVICAL POLYP [None]
